FAERS Safety Report 22328600 (Version 1)
Quarter: 2023Q2

REPORT INFORMATION
  Report Type: Spontaneous
  Country: US (occurrence: US)
  Receive Date: 20230517
  Receipt Date: 20230517
  Transmission Date: 20230721
  Serious: No
  Sender: FDA-Public Use
  Company Number: US-RADIUS HEALTH INC.-2022US005946

PATIENT
  Sex: Female

DRUGS (1)
  1. TYMLOS [Suspect]
     Active Substance: ABALOPARATIDE
     Indication: Product used for unknown indication
     Dosage: 80 MICROGRAM, QD
     Route: 058
     Dates: end: 202301

REACTIONS (9)
  - Polyuria [Unknown]
  - Functional gastrointestinal disorder [Unknown]
  - Dizziness [Unknown]
  - Injection site erythema [Unknown]
  - Injection site swelling [Unknown]
  - Diarrhoea [Unknown]
  - Abdominal pain upper [Unknown]
  - Back pain [Unknown]
  - Wrong technique in product usage process [Unknown]
